FAERS Safety Report 10889284 (Version 1)
Quarter: 2015Q1

REPORT INFORMATION
  Report Type: Spontaneous
  Country: FR (occurrence: FR)
  Receive Date: 20150305
  Receipt Date: 20150305
  Transmission Date: 20150721
  Serious: Yes (Other)
  Sender: FDA-Public Use
  Company Number: FR-MYLANLABS-2015M1006756

PATIENT

DRUGS (5)
  1. IDARUBICIN [Concomitant]
     Active Substance: IDARUBICIN
     Indication: ACUTE LEUKAEMIA
     Route: 065
  2. DEXRAZOXANE. [Concomitant]
     Active Substance: DEXRAZOXANE
     Indication: ACUTE LEUKAEMIA
     Route: 065
  3. TRETINOIN. [Suspect]
     Active Substance: TRETINOIN
     Indication: ACUTE LEUKAEMIA
     Dosage: 45 MG/M2 DAILY
     Route: 048
  4. CYTARABINE. [Concomitant]
     Active Substance: CYTARABINE
     Indication: ACUTE LEUKAEMIA
     Route: 065
  5. TRETINOIN. [Suspect]
     Active Substance: TRETINOIN
     Indication: OFF LABEL USE

REACTIONS (1)
  - Retinoic acid syndrome [Recovered/Resolved]
